FAERS Safety Report 9505848 (Version 1)
Quarter: 2013Q1

REPORT INFORMATION
  Report Type: Spontaneous
  Country: US (occurrence: None)
  Receive Date: 20130219
  Receipt Date: 20130219
  Transmission Date: 20140127
  Serious: Yes (Hospitalization)
  Sender: FDA-Public Use
  Company Number: 1205USA05346

PATIENT
  Age: 62 Year
  Sex: Male

DRUGS (12)
  1. ZOCOR [Suspect]
     Indication: HYPERCHOLESTEROLAEMIA
     Route: 048
     Dates: end: 20120507
  2. TELAPREVIR [Suspect]
     Indication: HEPATITIS C
     Dosage: 750 MG/G ONCE EVERY 8 HOURS
     Route: 048
     Dates: start: 20120409, end: 20120507
  3. PEGASYS (PEGINTERFERON ALFA-2A) [Concomitant]
  4. COPEGUS (RIBAVIRIN) [Concomitant]
  5. MK-9278 (VITAMINS) [Concomitant]
  6. PRAMIPEXOLE (PRAMIPEXOLE) [Concomitant]
  7. PRILOSEC [Concomitant]
  8. METOPROLOL (METOPROLOL) [Concomitant]
  9. PLAVIX (CLOPIDOGREL BISULFATE) [Concomitant]
  10. PRINIVIL (LISINOPRIL) TABLET [Concomitant]
  11. ASPIRIN (ASPIRIN) [Concomitant]
  12. ZOCOR (SIMVASTATIN) [Concomitant]

REACTIONS (6)
  - Rhabdomyolysis [None]
  - Asthenia [None]
  - Pyrexia [None]
  - Chills [None]
  - Bedridden [None]
  - Fluid retention [None]
